FAERS Safety Report 8510232-9 (Version None)
Quarter: 2012Q3

REPORT INFORMATION
  Report Type: 
  Country: None (occurrence: None)
  Receive Date: 20120713
  Receipt Date: 20120706
  Transmission Date: 20120928
  Serious: Yes (Hospitalization, Other)
  Sender: FDA-Public Use
  Company Number: FR-PFIZER INC-2012161962

PATIENT
  Age: 71 Year
  Sex: Female

DRUGS (3)
  1. ENALAPRIL [Concomitant]
  2. SULFASALAZINE [Suspect]
     Dosage: 500 MG, 4X/DAY
     Route: 048
     Dates: start: 20120403, end: 20120426
  3. PREDNISONE TAB [Concomitant]
     Dosage: UNK

REACTIONS (4)
  - ORAL CANDIDIASIS [None]
  - FACE OEDEMA [None]
  - RASH MORBILLIFORM [None]
  - PRURITUS [None]
